FAERS Safety Report 5119296-6 (Version None)
Quarter: 2006Q3

REPORT INFORMATION
  Report Type: 
  Country: None (occurrence: None)
  Receive Date: 20060928
  Receipt Date: 20060915
  Transmission Date: 20061208
  Serious: Yes (Other)
  Sender: FDA-Public Use
  Company Number: 2006112731

PATIENT
  Age: 39 Year
  Sex: Female
  Weight: 84.8226 kg

DRUGS (12)
  1. NEURONTIN [Suspect]
     Indication: NEUROPATHY PERIPHERAL
     Dosage: 900 MG (300 MG,3 IN 1 D)
     Dates: end: 20041201
  2. LYRICA [Suspect]
     Indication: NEUROPATHY PERIPHERAL
     Dosage: 100 MG (50 MG,2 IN 1 D)
     Dates: start: 20060101
  3. CORTISONE ACETATE [Suspect]
     Indication: TOXOPLASMOSIS
     Dates: start: 19680101
  4. VICOPROFEN [Suspect]
     Indication: ARTHRITIS
     Dates: start: 19680101
  5. AVAPRO [Concomitant]
  6. VERELAN PM [Concomitant]
  7. K-DUR 10 [Concomitant]
  8. HYDROCHLOROTHIAZDE TAB [Concomitant]
  9. KLONOPIN [Concomitant]
  10. NEXIUM [Concomitant]
  11. ESTRATEST [Concomitant]
  12. ASPIRIN [Concomitant]

REACTIONS (29)
  - AMNESIA [None]
  - ARTHRALGIA [None]
  - BURNING SENSATION [None]
  - CARDIAC DISORDER [None]
  - CATARACT [None]
  - CHONDROPATHY [None]
  - CONCUSSION [None]
  - DRUG INEFFECTIVE [None]
  - EXERCISE TOLERANCE DECREASED [None]
  - EYE DISORDER [None]
  - EYE HAEMORRHAGE [None]
  - FALL [None]
  - HAND DEFORMITY [None]
  - HEAD INJURY [None]
  - HYPERTENSION [None]
  - INSOMNIA [None]
  - LACRIMATION INCREASED [None]
  - LIGAMENT DISORDER [None]
  - MUSCLE SPASMS [None]
  - NEURALGIA [None]
  - NEUROPATHY PERIPHERAL [None]
  - OSTEOARTHRITIS [None]
  - PAIN IN EXTREMITY [None]
  - PELVIC PAIN [None]
  - POLYNEUROPATHY [None]
  - RHEUMATOID ARTHRITIS [None]
  - ROAD TRAFFIC ACCIDENT [None]
  - UTERINE MASS [None]
  - VISION BLURRED [None]
